FAERS Safety Report 8774819 (Version 1)
Quarter: 2012Q4

REPORT INFORMATION
  Report Type: 
  Country: US (occurrence: US)
  Receive Date: 20120910
  Receipt Date: 20120910
  Transmission Date: 20130627
  Serious: No
  Sender: FDA-Public Use
  Company Number: US-PFIZER INC-2012220339

PATIENT
  Age: 59 Year
  Sex: Female
  Weight: 68.03 kg

DRUGS (2)
  1. AMLODIPINE BESILATE [Suspect]
     Indication: HYPERTENSION
     Dosage: 10 mg, daily
     Dates: start: 201204, end: 201204
  2. PROPYLTHIOURACIL [Concomitant]
     Indication: BASEDOW^S DISEASE
     Dosage: UNK

REACTIONS (1)
  - Palpitations [Recovered/Resolved]
